FAERS Safety Report 9385139 (Version 2)
Quarter: 2013Q3

REPORT INFORMATION
  Report Type: Report from Study
  Country: US (occurrence: US)
  Receive Date: 20130705
  Receipt Date: 20130813
  Transmission Date: 20140515
  Serious: Yes (Hospitalization, Other)
  Sender: FDA-Public Use
  Company Number: US-US-EMD SERONO, INC.-7221776

PATIENT
  Sex: Male

DRUGS (6)
  1. REBIF [Suspect]
     Indication: MULTIPLE SCLEROSIS
     Route: 058
     Dates: start: 2004, end: 201010
  2. REBIF [Suspect]
     Route: 058
     Dates: end: 201201
  3. ACETYLSALICYLIC ACID [Concomitant]
     Indication: PRODUCT USED FOR UNKNOWN INDICATION
  4. AMITRIPTYLINE [Concomitant]
     Indication: HEADACHE
  5. AMOXICILLIN [Concomitant]
     Indication: SKIN LESION
  6. HYDROCORTISONE [Concomitant]
     Indication: SKIN LESION

REACTIONS (6)
  - Phaeochromocytoma [Recovering/Resolving]
  - Appendix disorder [Recovered/Resolved]
  - Irritable bowel syndrome [Not Recovered/Not Resolved]
  - Sleep apnoea syndrome [Not Recovered/Not Resolved]
  - Blood pressure fluctuation [Recovered/Resolved]
  - Multiple sclerosis [Not Recovered/Not Resolved]
